FAERS Safety Report 8334702-1 (Version None)
Quarter: 2012Q2

REPORT INFORMATION
  Report Type: 
  Country: None (occurrence: None)
  Receive Date: 20120503
  Receipt Date: 20120426
  Transmission Date: 20120825
  Serious: Yes (Other)
  Sender: FDA-Public Use
  Company Number: US-JNJFOC-20120412987

PATIENT
  Sex: Female
  Weight: 108.86 kg

DRUGS (4)
  1. SIMPONI [Suspect]
     Route: 058
     Dates: start: 20120401
  2. SIMPONI [Suspect]
     Indication: ANKYLOSING SPONDYLITIS
     Route: 058
     Dates: start: 20120401
  3. SIMPONI [Suspect]
     Route: 058
     Dates: start: 20120305
  4. SIMPONI [Suspect]
     Indication: RHEUMATOID ARTHRITIS
     Route: 058
     Dates: start: 20120305

REACTIONS (5)
  - PAIN [None]
  - UNDERDOSE [None]
  - DEVICE MALFUNCTION [None]
  - INAPPROPRIATE SCHEDULE OF DRUG ADMINISTRATION [None]
  - DRUG DOSE OMISSION [None]
